FAERS Safety Report 12308937 (Version 1)
Quarter: 2016Q2

REPORT INFORMATION
  Report Type: Spontaneous
  Country: US (occurrence: None)
  Receive Date: 20160426
  Receipt Date: 20160426
  Transmission Date: 20160815
  Serious: No
  Sender: FDA-Public Use
  Company Number: None

PATIENT
  Age: 59 Year
  Sex: Female
  Weight: 51.26 kg

DRUGS (10)
  1. RESTASIS [Suspect]
     Active Substance: CYCLOSPORINE
     Indication: DRY EYE
     Route: 047
     Dates: start: 20160423, end: 20160424
  2. OMEGA 3 [Concomitant]
     Active Substance: OMEGA-3 FATTY ACIDS
  3. C [Concomitant]
  4. K2 [Concomitant]
     Active Substance: JWH-018
  5. MULTI-VITAMIN [Concomitant]
     Active Substance: .ALPHA.-TOCOPHEROL ACETATE, DL-\ASCORBIC ACID\CYANOCOBALAMIN\FLUORIDE ION\FOLIC ACID\NIACIN\PYRIDOXINE\RIBOFLAVIN\THIAMINE\VITAMIN A\VITAMIN D
  6. TRAZODONE [Concomitant]
     Active Substance: TRAZODONE HYDROCHLORIDE
  7. TUMERIC [Concomitant]
     Active Substance: TURMERIC
  8. BUPROPION. [Concomitant]
     Active Substance: BUPROPION
  9. THYROID [Concomitant]
     Active Substance: LEVOTHYROXINE\LIOTHYRONINE
  10. COLLAGEN [Concomitant]
     Active Substance: COLLAGEN

REACTIONS (6)
  - Eye disorder [None]
  - Aura [None]
  - Nausea [None]
  - Abdominal pain upper [None]
  - Migraine [None]
  - Headache [None]

NARRATIVE: CASE EVENT DATE: 20160423
